FAERS Safety Report 5199489-2 (Version None)
Quarter: 2006Q4

REPORT INFORMATION
  Report Type: 
  Country: None (occurrence: None)
  Receive Date: 20061229
  Receipt Date: 20061211
  Transmission Date: 20070319
  Serious: Yes (Other)
  Sender: FDA-Public Use
  Company Number: 6028062

PATIENT
  Age: 6 Decade
  Sex: Male

DRUGS (1)
  1. LODOZ 2.5MG/6.25 MG (TABLET) (HYDROCHLOROTHIAZIDE, BISOPROLOL FUMARATE [Suspect]
     Indication: HYPERTENSION
     Dosage: ORAL; 2 - 3 YEARS - ONGOING
     Route: 048

REACTIONS (2)
  - PANCREATIC CYST [None]
  - PANCREATITIS ACUTE [None]
